FAERS Safety Report 17964777 (Version 1)
Quarter: 2020Q2

REPORT INFORMATION
  Report Type: Spontaneous
  Country: US (occurrence: US)
  Receive Date: 20200630
  Receipt Date: 20200630
  Transmission Date: 20200714
  Serious: Yes (Hospitalization, Other)
  Sender: FDA-Public Use
  Company Number: US-MYLANLABS-2020M1059979

PATIENT
  Age: 39 Year
  Sex: Male

DRUGS (16)
  1. DEXAMETHASONE. [Suspect]
     Active Substance: DEXAMETHASONE
     Dosage: 4 MILLIGRAM, Q8H
     Route: 065
  2. ETHAMBUTOL [Suspect]
     Active Substance: ETHAMBUTOL HYDROCHLORIDE
     Indication: DISSEMINATED TUBERCULOSIS
     Route: 065
  3. PYRAZINAMIDE. [Suspect]
     Active Substance: PYRAZINAMIDE
     Indication: DISSEMINATED TUBERCULOSIS
     Route: 065
  4. RIFAMPICIN [Interacting]
     Active Substance: RIFAMPIN
     Dosage: 20 MILLIGRAM/KILOGRAM
     Route: 048
  5. RUXOLITINIB [Interacting]
     Active Substance: RUXOLITINIB
     Indication: INFLAMMATION
     Dosage: 20 MILLIGRAM, BID
     Route: 065
  6. FLUCONAZOLE. [Concomitant]
     Active Substance: FLUCONAZOLE
     Indication: HISTOPLASMOSIS
     Route: 065
  7. AMPHOTERICIN-B [Concomitant]
     Active Substance: AMPHOTERICIN B
     Indication: HISTOPLASMOSIS
     Route: 065
  8. LINEZOLID. [Concomitant]
     Active Substance: LINEZOLID
     Indication: DISSEMINATED TUBERCULOSIS
     Route: 065
  9. RIFAMPICIN [Interacting]
     Active Substance: RIFAMPIN
     Indication: DISSEMINATED TUBERCULOSIS
     Dosage: 2 WEEKS COURSE
     Route: 042
  10. DEXAMETHASONE. [Suspect]
     Active Substance: DEXAMETHASONE
     Indication: INFLAMMATION
     Dosage: 6 MILLIGRAM, Q8H HIGH DOSE
     Route: 065
  11. MOXIFLOXACIN. [Concomitant]
     Active Substance: MOXIFLOXACIN
     Indication: DISSEMINATED TUBERCULOSIS
     Dosage: UNK
     Route: 065
  12. RUXOLITINIB [Interacting]
     Active Substance: RUXOLITINIB
     Dosage: 15 MILLIGRAM IN THE MORNING
     Route: 065
  13. RIFAMPICIN [Suspect]
     Active Substance: RIFAMPIN
     Indication: DISSEMINATED TUBERCULOSIS
     Dosage: INITIAL DOSE UNKNOWN
     Route: 048
  14. PREDNISONE. [Suspect]
     Active Substance: PREDNISONE
     Indication: INFLAMMATION
     Dosage: 1 MILLIGRAM/KILOGRAM; 70 MG
     Route: 065
  15. RUXOLITINIB [Interacting]
     Active Substance: RUXOLITINIB
     Dosage: 10 MILLIGRAM IN THE EVENING
     Route: 065
  16. ISONIAZID. [Suspect]
     Active Substance: ISONIAZID
     Indication: DISSEMINATED TUBERCULOSIS
     Route: 065

REACTIONS (5)
  - Paradoxical drug reaction [Recovering/Resolving]
  - Drug ineffective [Unknown]
  - Uveitis [Unknown]
  - Drug interaction [Unknown]
  - Inflammation [Recovering/Resolving]
